FAERS Safety Report 5507435-4 (Version None)
Quarter: 2007Q4

REPORT INFORMATION
  Report Type: 
  Country: None (occurrence: None)
  Receive Date: 20071024
  Receipt Date: 20060907
  Transmission Date: 20080405
  Serious: Yes (Hospitalization)
  Sender: FDA-Public Use
  Company Number: US-JNJFOC-20060904031

PATIENT
  Age: 62 Year
  Sex: Male

DRUGS (3)
  1. FLEXERIL [Suspect]
     Indication: MUSCLE SPASMS
     Dosage: 10 MG, 3 IN ONE DAY AS NECESSARY ; 120 MG, 1 IN 1 TOTAL, ORAL
     Route: 048
     Dates: start: 20010305, end: 20010305
  2. ACETAMINOPHEN [Suspect]
     Indication: DRUG USE FOR UNKNOWN INDICATION
     Dosage: 20 DOSE(S), 1 IN 1 TOTAL
     Dates: start: 20010305, end: 20010305
  3. BEER (ETHANOL) [Suspect]
     Indication: DRUG USE FOR UNKNOWN INDICATION
     Dosage: 2 DOSE(S), 1 IN 1 TOTAL
     Dates: start: 20010306, end: 20010306

REACTIONS (5)
  - DEPRESSIVE SYMPTOM [None]
  - FALL [None]
  - FEELING ABNORMAL [None]
  - HYPERSOMNIA [None]
  - MULTIPLE DRUG OVERDOSE INTENTIONAL [None]
